FAERS Safety Report 13277201 (Version 1)
Quarter: 2017Q1

REPORT INFORMATION
  Report Type: Spontaneous
  Country: US (occurrence: US)
  Receive Date: 20170228
  Receipt Date: 20170228
  Transmission Date: 20170428
  Serious: No
  Sender: FDA-Public Use
  Company Number: None

PATIENT
  Age: 49 Year
  Sex: Female
  Weight: 60.38 kg

DRUGS (1)
  1. FERROUS SULFATE 325MG TABLET [Suspect]
     Active Substance: FERROUS SULFATE
     Indication: IRON DEFICIENCY ANAEMIA
     Route: 048

REACTIONS (6)
  - Dizziness [None]
  - Muscle contractions involuntary [None]
  - Ocular discomfort [None]
  - Erythema [None]
  - Palpitations [None]
  - Ear swelling [None]
